FAERS Safety Report 7498510-6 (Version None)
Quarter: 2011Q2

REPORT INFORMATION
  Report Type: 
  Country: None (occurrence: None)
  Receive Date: 20110524
  Receipt Date: 20091122
  Transmission Date: 20111010
  Serious: Yes (Death, Other)
  Sender: FDA-Public Use
  Company Number: US-BAYER-200940654NA

PATIENT
  Age: 75 Year
  Sex: Male
  Weight: 54.422 kg

DRUGS (19)
  1. VITAMIN B12 NOS [Concomitant]
     Dosage: 1 DAILY
     Route: 048
  2. FOLIC ACID [Concomitant]
     Dosage: 1 DAILY
     Route: 048
  3. MAGNESIUM SULFATE [Concomitant]
     Dosage: 1.5 GRAMS
     Route: 042
  4. SODIUM BICARBONATE [Concomitant]
     Dosage: 100 MILLEQUIVILANT
     Route: 042
  5. ISORDIL [Concomitant]
     Dosage: 30 MG, QD
     Route: 048
  6. CALTRATE + VITAMIN D [Concomitant]
     Dosage: 600 MG, BID
     Route: 048
  7. FERROUS SULFATE TAB [Concomitant]
     Dosage: 1 DAILY
     Route: 048
  8. PROTAMINE SULFATE [Concomitant]
     Route: 042
  9. TYLENOL PM [Suspect]
     Dosage: 6 TIMES PER WEEK
     Route: 048
  10. VERSED [Concomitant]
     Dosage: 5 MG
     Route: 042
  11. PROSTIGMIN BROMIDE [Concomitant]
     Dosage: 0.5 MG/ML
     Route: 042
  12. DOXAZOSIN MESYLATE [Concomitant]
     Dosage: 8 MG, QD
     Route: 048
  13. HEPARIN [Concomitant]
     Dosage: 26, 800 UNITS
     Route: 042
  14. ALBUMIN [ALBUMEN] [Concomitant]
     Dosage: 12.5 GRAM
     Route: 042
  15. LASIX [Concomitant]
     Dosage: 40 MG, QD
     Route: 048
  16. RED BLOOD CELLS [Concomitant]
     Dosage: 1 UNIT
     Route: 042
     Dates: start: 20030630
  17. TRASYLOL [Suspect]
     Indication: CORONARY ARTERY BYPASS
     Dosage: 100CC LOADING DOSE FOLLOWED BY 50 CC/HOUR INFUSION-LOADING DOSE.
     Route: 042
     Dates: start: 20030630, end: 20030630
  18. PLASMA [Concomitant]
     Dosage: 200 CC
     Route: 042
     Dates: start: 20030630
  19. VERELAN [Concomitant]
     Dosage: 300 MG, BID
     Route: 048

REACTIONS (13)
  - ANHEDONIA [None]
  - STRESS [None]
  - DEATH [None]
  - EMOTIONAL DISTRESS [None]
  - PAIN [None]
  - RENAL INJURY [None]
  - ANXIETY [None]
  - INJURY [None]
  - FEAR [None]
  - RENAL FAILURE [None]
  - MULTI-ORGAN FAILURE [None]
  - RENAL IMPAIRMENT [None]
  - UNEVALUABLE EVENT [None]
